FAERS Safety Report 15989641 (Version 4)
Quarter: 2019Q3

REPORT INFORMATION
  Report Type: Spontaneous
  Country: US (occurrence: US)
  Receive Date: 20190221
  Receipt Date: 20190903
  Transmission Date: 20191004
  Serious: No
  Sender: FDA-Public Use
  Company Number: US-PFIZER INC-2019076102

PATIENT
  Age: 64 Year
  Sex: Female
  Weight: 83.91 kg

DRUGS (5)
  1. COMBIGAN [Concomitant]
     Active Substance: BRIMONIDINE TARTRATE\TIMOLOL MALEATE
     Indication: PROPHYLAXIS
     Dosage: 2 GTT, 2X/DAY (BOTH EYES, ONE DROP, TWICE A DAY)
     Route: 047
  2. IBRANCE [Suspect]
     Active Substance: PALBOCICLIB
     Indication: BREAST CANCER METASTATIC
     Dosage: 125 MG, CYCLIC(ONCE A DAY, 21 DAYS IN A ROW AND THEN OFF A WEEK, BY MOUTH)
     Route: 048
     Dates: start: 201710
  3. XGEVA [Concomitant]
     Active Substance: DENOSUMAB
     Indication: BREAST CANCER METASTATIC
     Dosage: UNK, MONTHLY(ONCE A MONTH, SHOT IN THE ARM, DOSE UNKNOWN)
     Dates: start: 201607
  4. ANASTROZOLE. [Concomitant]
     Active Substance: ANASTROZOLE
     Indication: BREAST CANCER METASTATIC
     Dosage: 1 MG, 1X/DAY
     Route: 048
     Dates: start: 20160729
  5. CALCIUM CITRATE + D3 [Concomitant]
     Indication: MINERAL SUPPLEMENTATION
     Dosage: 800 MG, 1X/DAY
     Route: 048
     Dates: start: 201607

REACTIONS (3)
  - Tooth fracture [Unknown]
  - Neoplasm progression [Unknown]
  - White blood cell count decreased [Not Recovered/Not Resolved]

NARRATIVE: CASE EVENT DATE: 201907
